FAERS Safety Report 12072051 (Version 1)
Quarter: 2016Q1

REPORT INFORMATION
  Report Type: Spontaneous
  Country: US (occurrence: US)
  Receive Date: 20160212
  Receipt Date: 20160212
  Transmission Date: 20160526
  Serious: Yes (Other)
  Sender: FDA-Public Use
  Company Number: US-JNJFOC-20160201313

PATIENT

DRUGS (2)
  1. MINOXIDIL. [Suspect]
     Active Substance: MINOXIDIL
     Route: 061
  2. MINOXIDIL. [Suspect]
     Active Substance: MINOXIDIL
     Indication: PRODUCT USED FOR UNKNOWN INDICATION
     Dosage: 1 TEASPOON
     Route: 061

REACTIONS (5)
  - Overdose [Unknown]
  - Hypernatraemia [Unknown]
  - Heart rate increased [Unknown]
  - Myocardial infarction [Unknown]
  - Fluid retention [Unknown]
